FAERS Safety Report 10673798 (Version 2)
Quarter: 2015Q1

REPORT INFORMATION
  Report Type: Report from Study
  Country: JP (occurrence: JP)
  Receive Date: 20141224
  Receipt Date: 20150310
  Transmission Date: 20150720
  Serious: Yes (Hospitalization, Other)
  Sender: FDA-Public Use
  Company Number: JP-UCBSA-2014021653

PATIENT
  Age: 46 Year
  Sex: Female
  Weight: 82.2 kg

DRUGS (10)
  1. CERTOLIZUMAB PEGOL RA [Suspect]
     Active Substance: CERTOLIZUMAB PEGOL
     Indication: RHEUMATOID ARTHRITIS
     Dosage: 400 MG, EV 2 WEEKS(QOW)
     Route: 058
     Dates: start: 20131230, end: 20140124
  2. LIMETHASONE [Concomitant]
     Active Substance: DEXAMETHASONE PALMITATE\GLYCERIN\LECITHIN\SOYBEAN OIL
     Dosage: UNK
     Route: 042
     Dates: start: 20140320
  3. CERTOLIZUMAB PEGOL RA [Suspect]
     Active Substance: CERTOLIZUMAB PEGOL
     Dosage: 200 MG, EV 2 WEEKS(QOW)
     Route: 058
     Dates: start: 20140207, end: 20140221
  4. CERTOLIZUMAB PEGOL RA [Suspect]
     Active Substance: CERTOLIZUMAB PEGOL
     Dosage: 200 MG UNK
     Route: 058
     Dates: start: 20140624, end: 20140624
  5. LIMETHASONE [Concomitant]
     Active Substance: DEXAMETHASONE PALMITATE\GLYCERIN\LECITHIN\SOYBEAN OIL
     Indication: PRODUCT USED FOR UNKNOWN INDICATION
     Dosage: UNK
     Route: 042
     Dates: start: 20140307, end: 201403
  6. METHOTREXATE [Suspect]
     Active Substance: METHOTREXATE
     Indication: RHEUMATOID ARTHRITIS
     Dosage: 8 MG, UNK
     Route: 048
     Dates: end: 20140307
  7. CERTOLIZUMAB PEGOL RA [Suspect]
     Active Substance: CERTOLIZUMAB PEGOL
     Dosage: 200 MG, EV 2 WEEKS(QOW)
     Route: 058
     Dates: start: 20140328, end: 20140424
  8. METHOTREXATE [Suspect]
     Active Substance: METHOTREXATE
     Dosage: 8 MG, UNK
     Route: 048
     Dates: start: 20140328, end: 20140423
  9. METHOTREXATE [Suspect]
     Active Substance: METHOTREXATE
     Dosage: 10 MG, UNK
     Route: 048
     Dates: start: 20140424, end: 20140506
  10. METHOTREXATE [Suspect]
     Active Substance: METHOTREXATE
     Dosage: 10 MG, UNK
     Route: 048
     Dates: start: 20140624, end: 20140626

REACTIONS (2)
  - Urinary tract infection [Recovered/Resolved]
  - Peritonitis [Recovered/Resolved]

NARRATIVE: CASE EVENT DATE: 20140506
